FAERS Safety Report 4335846-1 (Version None)
Quarter: 2004Q2

REPORT INFORMATION
  Report Type: 
  Country: None (occurrence: None)
  Receive Date: 20040405
  Receipt Date: 20040323
  Transmission Date: 20050107
  Serious: Yes (Hospitalization)
  Sender: FDA-Public Use
  Company Number: 04P-056-0254514-00

PATIENT
  Age: 70 Year
  Sex: Female

DRUGS (1)
  1. LIPANTHYL  (TRICOLOR) (FENOFIBRATE) [Suspect]
     Dosage: ONCE, ORAL
     Route: 048
     Dates: start: 20040310, end: 20040310

REACTIONS (4)
  - IMMUNE SYSTEM DISORDER [None]
  - PHOTOSENSITIVITY REACTION [None]
  - STAPHYLOCOCCAL INFECTION [None]
  - TOXIC EPIDERMAL NECROLYSIS [None]
